FAERS Safety Report 4772443-8 (Version None)
Quarter: 2005Q3

REPORT INFORMATION
  Report Type: 
  Country: None (occurrence: None)
  Receive Date: 20050919
  Receipt Date: 20050912
  Transmission Date: 20060218
  Serious: Yes (Other)
  Sender: FDA-Public Use
  Company Number: PHNU2005DE03137

PATIENT
  Age: 65 Year
  Sex: Female

DRUGS (1)
  1. CLOZARIL [Suspect]
     Dosage: 100 MG/DAY
     Route: 048
     Dates: start: 20050801

REACTIONS (4)
  - C-REACTIVE PROTEIN INCREASED [None]
  - LYMPHOPENIA [None]
  - NEUTROPHILIA [None]
  - UPPER RESPIRATORY TRACT INFECTION [None]
